FAERS Safety Report 7569068-8 (Version None)
Quarter: 2011Q2

REPORT INFORMATION
  Report Type: 
  Country: None (occurrence: None)
  Receive Date: 20110623
  Receipt Date: 20110616
  Transmission Date: 20111010
  Serious: Yes (Hospitalization)
  Sender: FDA-Public Use
  Company Number: US-B.I. PHARMACEUTICALS,INC./RIDGEFIELD-2011-BP-15542BP

PATIENT
  Age: 60 Year
  Sex: Male

DRUGS (6)
  1. CARAFATE [Concomitant]
     Route: 048
  2. MOBIC [Suspect]
     Dosage: 15 MG
     Route: 048
  3. CARBOPLATIN [Suspect]
     Indication: NON-SMALL CELL LUNG CANCER
     Dates: start: 20110418
  4. TAXOL [Suspect]
     Indication: NON-SMALL CELL LUNG CANCER
     Dates: end: 20110314
  5. PRILOSEC [Concomitant]
     Dosage: 20 MG
     Route: 048
  6. ERBITUX [Suspect]
     Indication: NON-SMALL CELL LUNG CANCER
     Dates: end: 20110502

REACTIONS (3)
  - OESOPHAGITIS [None]
  - NEUTROPENIA [None]
  - PANCYTOPENIA [None]
